FAERS Safety Report 7235036-9 (Version None)
Quarter: 2011Q1

REPORT INFORMATION
  Report Type: 
  Country: None (occurrence: None)
  Receive Date: 20110120
  Receipt Date: 20110112
  Transmission Date: 20110831
  Serious: Yes (Hospitalization, Other)
  Sender: FDA-Public Use
  Company Number: US-US-EMD SERONO, INC.-7036094

PATIENT
  Sex: Male

DRUGS (2)
  1. UNSPECIFIED MEDICATIONS TOO MANY TO LIST [Concomitant]
  2. REBIF [Suspect]
     Indication: MULTIPLE SCLEROSIS
     Route: 058
     Dates: start: 20090323

REACTIONS (14)
  - PLATELET COUNT DECREASED [None]
  - LOBAR PNEUMONIA [None]
  - ANAEMIA [None]
  - SEPSIS [None]
  - HYPOTHERMIA [None]
  - CONFUSIONAL STATE [None]
  - MUSCLE RIGIDITY [None]
  - WOUND [None]
  - CONVULSION [None]
  - URINARY TRACT INFECTION [None]
  - GAIT DISTURBANCE [None]
  - THERMAL BURN [None]
  - NASOPHARYNGITIS [None]
  - SPEECH DISORDER [None]
